FAERS Safety Report 7111771-8 (Version None)
Quarter: 2010Q4

REPORT INFORMATION
  Report Type: 
  Country: None (occurrence: None)
  Receive Date: 20101119
  Receipt Date: 20100330
  Transmission Date: 20110411
  Serious: Yes (Death)
  Sender: FDA-Public Use
  Company Number: US-ASTRAZENECA-2006UW08881

PATIENT
  Age: 75 Year
  Sex: Female
  Weight: 61.2 kg

DRUGS (12)
  1. SEROQUEL [Suspect]
     Indication: SCHIZOPHRENIA
     Route: 048
     Dates: start: 20040601
  2. SEROQUEL [Suspect]
     Indication: BIPOLAR DISORDER
     Route: 048
     Dates: start: 20040601
  3. SEROQUEL [Suspect]
     Indication: OBSESSIVE-COMPULSIVE DISORDER
     Route: 048
     Dates: start: 20040601
  4. SEROQUEL [Suspect]
     Route: 048
     Dates: start: 20040709
  5. SEROQUEL [Suspect]
     Route: 048
     Dates: start: 20040709
  6. SEROQUEL [Suspect]
     Route: 048
     Dates: start: 20040709
  7. RISPERDAL [Suspect]
     Route: 065
     Dates: start: 20040601
  8. ZYPREXA [Suspect]
     Dosage: 2.5 MG TO 7.5 MG
     Route: 065
     Dates: start: 20000301, end: 20050101
  9. LANOXIN [Concomitant]
     Dates: start: 20040713
  10. SYNTHROID [Concomitant]
     Dates: start: 20040713
  11. ZESTRIL [Concomitant]
     Dates: start: 20040713
  12. COUMADIN [Concomitant]
     Dates: start: 20040713

REACTIONS (3)
  - DEATH [None]
  - DIABETES MELLITUS [None]
  - TYPE 2 DIABETES MELLITUS [None]
